FAERS Safety Report 16464443 (Version 1)
Quarter: 2019Q2

REPORT INFORMATION
  Report Type: Spontaneous
  Country: NL (occurrence: NL)
  Receive Date: 20190621
  Receipt Date: 20190621
  Transmission Date: 20190711
  Serious: Yes (Life-Threatening, Hospitalization)
  Sender: FDA-Public Use
  Company Number: NL-MYLANLABS-2019M1058319

PATIENT
  Age: 52 Year
  Sex: Female
  Weight: 100 kg

DRUGS (7)
  1. QUETIAPINE. [Suspect]
     Active Substance: QUETIAPINE
     Indication: SLEEP DISORDER
     Dosage: 75 MILLIGRAM, QD 1X PER DAG 75 MILLIGRAM
     Route: 048
     Dates: start: 2011
  2. OAC HP7 [Concomitant]
     Dosage: 1 DOSAGE FORM
  3. NORTRIPTYLINE [Concomitant]
     Active Substance: NORTRIPTYLINE
     Dosage: 50 MILLIGRAM, QD (50 MILLIGRAM PER DAG)
  4. QUETIAPINE. [Suspect]
     Active Substance: QUETIAPINE
     Indication: ANXIETY
  5. TRAZODON [Concomitant]
     Active Substance: TRAZODONE HYDROCHLORIDE
     Dosage: 100 MILLIGRAM, QD 100 MILLIGRAM PER DAG
  6. LEVOMEPROMAZINE [Suspect]
     Active Substance: LEVOMEPROMAZINE
     Indication: SLEEP DISORDER
     Dosage: 50 GRAM, QD (1X PER DAG 50 MILLIGRAM)
     Route: 048
     Dates: start: 201810, end: 20181205
  7. DIAZEPAM. [Concomitant]
     Active Substance: DIAZEPAM
     Dosage: 1 DOSAGE FORM (25 MILLIGRAM PER DAG)

REACTIONS (2)
  - Pulmonary embolism [Recovering/Resolving]
  - Off label use [Unknown]

NARRATIVE: CASE EVENT DATE: 20181205
